FAERS Safety Report 5467958-3 (Version None)
Quarter: 2007Q3

REPORT INFORMATION
  Report Type: 
  Country: None (occurrence: None)
  Receive Date: 20070924
  Receipt Date: 20070914
  Transmission Date: 20080115
  Serious: Yes (Disabling)
  Sender: FDA-Public Use
  Company Number: OSCN-NO-0709S-0360

PATIENT
  Age: 36 Year
  Sex: Male
  Weight: 75 kg

DRUGS (7)
  1. OMNISCAN [Suspect]
     Indication: DRUG USE FOR UNKNOWN INDICATION
     Dosage: 7.5 ML, SINGLE DOSE, I.V.
     Route: 042
     Dates: start: 20031110, end: 20031110
  2. OMNISCAN [Suspect]
     Indication: DRUG USE FOR UNKNOWN INDICATION
     Dosage: 7.5 ML, SINGLE DOSE, I.V.
     Route: 042
     Dates: start: 20031113, end: 20031113
  3. PREDNISOLONE [Concomitant]
  4. AZATHIOPRINE [Concomitant]
  5. CYCLOSPORINE [Concomitant]
  6. MYCOPHENOLIC ACID (CELLCEPT) [Concomitant]
  7. RAPAMUNE [Concomitant]

REACTIONS (3)
  - DRUG INEFFECTIVE [None]
  - NEPHROGENIC SYSTEMIC FIBROSIS [None]
  - RENAL TRANSPLANT [None]
